FAERS Safety Report 12626976 (Version 3)
Quarter: 2018Q4

REPORT INFORMATION
  Report Type: Spontaneous
  Country: CA (occurrence: CA)
  Receive Date: 20160805
  Receipt Date: 20181123
  Transmission Date: 20190204
  Serious: Yes (Other)
  Sender: FDA-Public Use
  Company Number: CA-AMGEN-CANSP2016100545

PATIENT
  Age: 64 Year
  Sex: Female

DRUGS (8)
  1. ENBREL [Suspect]
     Active Substance: ETANERCEPT
     Indication: RHEUMATOID ARTHRITIS
     Dosage: 25 MG, 2 TIMES/WK
     Route: 058
     Dates: start: 200107, end: 201212
  2. APO-HYDROXYQUINE [Suspect]
     Active Substance: HYDROXYCHLOROQUINE SULFATE
     Indication: PRODUCT USED FOR UNKNOWN INDICATION
     Dosage: 200 MG, QD
     Route: 065
  3. AZATHIOPRINE. [Suspect]
     Active Substance: AZATHIOPRINE
     Indication: PRODUCT USED FOR UNKNOWN INDICATION
     Dosage: 50 MG, DIE
     Route: 065
     Dates: start: 200007
  4. APO-AZATHIOPRINE [Suspect]
     Active Substance: AZATHIOPRINE
     Indication: PRODUCT USED FOR UNKNOWN INDICATION
     Dosage: 50 MG, UNK
     Route: 065
  5. APO-AZATHIOPRINE [Suspect]
     Active Substance: AZATHIOPRINE
     Dosage: 50 MG, BID
     Route: 065
  6. METHOTREXATE. [Concomitant]
     Active Substance: METHOTREXATE
     Indication: RHEUMATOID ARTHRITIS
     Dosage: 20 MG, WEEKLY
     Route: 048
     Dates: start: 1980
  7. SIMPONI [Suspect]
     Active Substance: GOLIMUMAB
     Indication: PRODUCT USED FOR UNKNOWN INDICATION
     Dosage: UNK
     Route: 065
     Dates: start: 201212
  8. AZATHIOPRINE. [Suspect]
     Active Substance: AZATHIOPRINE
     Dosage: 50 MG, BID
     Route: 065
     Dates: end: 200107

REACTIONS (15)
  - Foot deformity [Recovered/Resolved]
  - Headache [Recovered/Resolved]
  - Drug effect incomplete [Recovered/Resolved]
  - Joint swelling [Recovered/Resolved]
  - Herpes zoster [Recovered/Resolved]
  - Rheumatoid arthritis [Recovered/Resolved]
  - Drug effect decreased [Unknown]
  - Epigastric discomfort [Recovered/Resolved]
  - Migraine [Recovered/Resolved]
  - Drug ineffective [Unknown]
  - Hip arthroplasty [Recovered/Resolved]
  - Hypothyroidism [Recovered/Resolved]
  - Knee arthroplasty [Recovered/Resolved]
  - Arthralgia [Recovered/Resolved]
  - Drug intolerance [Recovered/Resolved]

NARRATIVE: CASE EVENT DATE: 201409
